FAERS Safety Report 9280530 (Version 1)
Quarter: 2013Q2

REPORT INFORMATION
  Report Type: Spontaneous
  Country: US (occurrence: US)
  Receive Date: 20130509
  Receipt Date: 20130509
  Transmission Date: 20140414
  Serious: No
  Sender: FDA-Public Use
  Company Number: US-TEVA-402922USA

PATIENT
  Age: 61 Year
  Sex: Female

DRUGS (1)
  1. ACTIQ [Suspect]
     Indication: BACK DISORDER
     Route: 048

REACTIONS (1)
  - Drug ineffective [Unknown]
